FAERS Safety Report 23264798 (Version 1)
Quarter: 2023Q4

REPORT INFORMATION
  Report Type: Report from Study
  Country: US (occurrence: US)
  Receive Date: 20231206
  Receipt Date: 20231206
  Transmission Date: 20240109
  Serious: Yes (Hospitalization)
  Sender: FDA-Public Use
  Company Number: US-ABBVIE-5521571

PATIENT
  Age: 65 Year
  Sex: Male

DRUGS (1)
  1. CREON [Suspect]
     Active Substance: PANCRELIPASE AMYLASE\PANCRELIPASE LIPASE\PANCRELIPASE PROTEASE
     Indication: Pancreatic carcinoma
     Dosage: FORM STRENGTH: 36000 UNIT?FREQUENCY TEXT: 2 CAPS WITH MEALS; 1 CAP WITH SNACK
     Route: 048
     Dates: start: 202207

REACTIONS (1)
  - Device occlusion [Recovering/Resolving]

NARRATIVE: CASE EVENT DATE: 20231127
